FAERS Safety Report 12177459 (Version 2)
Quarter: 2017Q3

REPORT INFORMATION
  Report Type: Spontaneous
  Country: JP (occurrence: JP)
  Receive Date: 20160314
  Receipt Date: 20170829
  Transmission Date: 20171127
  Serious: Yes (Other)
  Sender: FDA-Public Use
  Company Number: JP-UCBSA-2016006870

PATIENT
  Age: 8 Year
  Sex: Female

DRUGS (1)
  1. XYZAL [Suspect]
     Active Substance: LEVOCETIRIZINE DIHYDROCHLORIDE
     Indication: RHINITIS ALLERGIC
     Dosage: 2.5 MG, BID
     Route: 048
     Dates: start: 20140705, end: 20160219

REACTIONS (2)
  - Premature menarche [Recovered/Resolved]
  - Precocious puberty [Recovered/Resolved]

NARRATIVE: CASE EVENT DATE: 20160211
